FAERS Safety Report 5451499-3 (Version None)
Quarter: 2007Q3

REPORT INFORMATION
  Report Type: 
  Country: None (occurrence: None)
  Receive Date: 20070913
  Receipt Date: 20070903
  Transmission Date: 20080115
  Serious: Yes (Hospitalization)
  Sender: FDA-Public Use
  Company Number: DE-AMGEN-UK240879

PATIENT

DRUGS (4)
  1. ARANESP [Suspect]
     Indication: DRUG USE FOR UNKNOWN INDICATION
     Route: 042
     Dates: start: 20070815, end: 20070815
  2. DOCETAXEL [Concomitant]
     Route: 042
     Dates: start: 20070815, end: 20070815
  3. ADRIAMYCIN PFS [Concomitant]
     Route: 042
     Dates: start: 20070815, end: 20070815
  4. CYCLOPHOSPHAMIDE [Concomitant]
     Route: 042
     Dates: start: 20070815, end: 20070815

REACTIONS (3)
  - FULL BLOOD COUNT DECREASED [None]
  - GENERAL PHYSICAL HEALTH DETERIORATION [None]
  - MENTAL DISORDER [None]
